FAERS Safety Report 20082358 (Version 3)
Quarter: 2021Q4

REPORT INFORMATION
  Report Type: Report from Study
  Country: GR (occurrence: GR)
  Receive Date: 20211117
  Receipt Date: 20211209
  Transmission Date: 20220303
  Serious: Yes (Hospitalization, Other)
  Sender: FDA-Public Use
  Company Number: GR-PFIZER INC-202101570783

PATIENT
  Age: 66 Year
  Sex: Male
  Weight: 97 kg

DRUGS (4)
  1. XELJANZ [Suspect]
     Active Substance: TOFACITINIB CITRATE
     Indication: Rheumatoid arthritis
     Dosage: 10 MG (5 X2 MG), 2X/DAY
     Route: 048
     Dates: start: 20201217, end: 20210329
  2. COLCHICINE [Concomitant]
     Active Substance: COLCHICINE
     Indication: Hyperuricaemia
     Dosage: COLCHICINE 1
     Route: 048
     Dates: start: 20180206
  3. ALLOPURINOL [Concomitant]
     Active Substance: ALLOPURINOL
     Indication: Hyperuricaemia
     Dosage: SOLURIC 300
     Route: 048
     Dates: start: 20180206
  4. QUINAPRIL HYDROCHLORIDE [Concomitant]
     Active Substance: QUINAPRIL HYDROCHLORIDE
     Indication: Dyslipidaemia
     Dosage: ACCUPRON 20
     Dates: start: 20180206

REACTIONS (3)
  - Pericarditis [Recovered/Resolved]
  - Pericardial effusion [Recovered/Resolved]
  - Atrial fibrillation [Recovered/Resolved]

NARRATIVE: CASE EVENT DATE: 20210329
